FAERS Safety Report 19449072 (Version 1)
Quarter: 2021Q2

REPORT INFORMATION
  Report Type: Spontaneous
  Country: US (occurrence: US)
  Receive Date: 20210622
  Receipt Date: 20210622
  Transmission Date: 20210717
  Serious: Yes (Other)
  Sender: FDA-Public Use
  Company Number: US-AMNEAL PHARMACEUTICALS-2021-AMRX-01243

PATIENT
  Sex: Female

DRUGS (1)
  1. ISOTRETINOIN. [Suspect]
     Active Substance: ISOTRETINOIN
     Indication: PRODUCT USED FOR UNKNOWN INDICATION
     Dosage: 30 MILLIGRAM, 2X/DAY
     Route: 065
     Dates: start: 20201005, end: 202103

REACTIONS (4)
  - Vaginal haemorrhage [Unknown]
  - Abortion induced [Unknown]
  - Exposure during pregnancy [Unknown]
  - Product dispensing error [Unknown]

NARRATIVE: CASE EVENT DATE: 2021
